FAERS Safety Report 16682218 (Version 1)
Quarter: 2019Q3

REPORT INFORMATION
  Report Type: Spontaneous
  Country: DE (occurrence: DE)
  Receive Date: 20190808
  Receipt Date: 20190808
  Transmission Date: 20191004
  Serious: Yes (Disabling, Other)
  Sender: FDA-Public Use
  Company Number: DE-SA-2019SA209355

PATIENT
  Age: 25 Year
  Sex: Male
  Weight: 67 kg

DRUGS (1)
  1. LEMTRADA [Suspect]
     Active Substance: ALEMTUZUMAB
     Indication: MULTIPLE SCLEROSIS
     Dosage: UNK UNK, UNK
     Route: 065

REACTIONS (20)
  - Quadriparesis [Unknown]
  - Nuclear magnetic resonance imaging abnormal [Unknown]
  - Musculoskeletal stiffness [Unknown]
  - Muscular weakness [Unknown]
  - Hypoaesthesia [Unknown]
  - Feeling cold [Unknown]
  - Pain [Unknown]
  - Cytomegalovirus infection [Unknown]
  - Gait disturbance [Recovering/Resolving]
  - Clonus [Unknown]
  - Fatigue [Unknown]
  - Paraparesis [Unknown]
  - Ataxia [Unknown]
  - Multiple sclerosis relapse [Unknown]
  - Burning sensation [Unknown]
  - Paraesthesia [Unknown]
  - Sensory disturbance [Unknown]
  - Feeling of body temperature change [Unknown]
  - Mobility decreased [Unknown]
  - Dysaesthesia [Unknown]

NARRATIVE: CASE EVENT DATE: 2019
